FAERS Safety Report 5413602-0 (Version None)
Quarter: 2007Q3

REPORT INFORMATION
  Report Type: 
  Country: None (occurrence: None)
  Receive Date: 20070814
  Receipt Date: 20060721
  Transmission Date: 20080115
  Serious: No
  Sender: FDA-Public Use
  Company Number: US-BRISTOL-MYERS SQUIBB COMPANY-13450234

PATIENT
  Age: 73 Year
  Sex: Female

DRUGS (4)
  1. GLUCOVANCE [Suspect]
  2. GLYBURIDE [Concomitant]
  3. LOTENSIN HCT [Concomitant]
  4. SYNTHROID [Concomitant]

REACTIONS (2)
  - BLOOD GLUCOSE INCREASED [None]
  - MALAISE [None]
